FAERS Safety Report 6608504-8 (Version None)
Quarter: 2010Q1

REPORT INFORMATION
  Report Type: 
  Country: None (occurrence: None)
  Receive Date: 20100301
  Receipt Date: 20100222
  Transmission Date: 20100710
  Serious: Yes (Death)
  Sender: FDA-Public Use
  Company Number: JP-GENENTECH-297741

PATIENT
  Sex: Male

DRUGS (4)
  1. GRTPA [Suspect]
     Indication: CEREBRAL INFARCTION
     Dosage: 24 MIU, SINGLE
     Route: 042
     Dates: start: 20100128, end: 20100128
  2. RADICUT [Concomitant]
     Indication: DRUG USE FOR UNKNOWN INDICATION
     Dosage: 30 MG, UNK
     Route: 041
     Dates: start: 20100128, end: 20100128
  3. SOLDEM [Concomitant]
     Indication: DRUG USE FOR UNKNOWN INDICATION
     Dosage: UNK
     Route: 051
     Dates: start: 20100128, end: 20100128
  4. POTACOL-R (JAPAN) [Concomitant]
     Indication: DRUG USE FOR UNKNOWN INDICATION
     Dosage: UNK
     Route: 051
     Dates: start: 20100128, end: 20100128

REACTIONS (3)
  - AORTIC DISSECTION [None]
  - CARDIAC TAMPONADE [None]
  - HAEMORRHAGE [None]
